FAERS Safety Report 4945565-6 (Version None)
Quarter: 2006Q1

REPORT INFORMATION
  Report Type: 
  Country: None (occurrence: None)
  Receive Date: 20060316
  Receipt Date: 20051019
  Transmission Date: 20060701
  Serious: Yes (Death, Hospitalization, Other)
  Sender: FDA-Public Use
  Company Number: PR-MERCK-0510USA08127

PATIENT
  Age: 65 Year
  Sex: Female
  Weight: 68 kg

DRUGS (8)
  1. VIOXX [Suspect]
     Indication: RHEUMATOID ARTHRITIS
     Route: 048
     Dates: start: 19990101, end: 20000329
  2. VIOXX [Suspect]
     Route: 048
     Dates: start: 19990101, end: 20000329
  3. CELEBREX [Suspect]
     Route: 065
     Dates: start: 19980101
  4. ASPIRIN [Concomitant]
     Route: 065
  5. INSULIN [Concomitant]
     Route: 065
  6. ANTIVERT [Concomitant]
     Route: 065
  7. SENOKOT [Concomitant]
     Route: 065
     Dates: start: 19980101
  8. ZANTAC [Concomitant]
     Route: 065
     Dates: start: 19980101

REACTIONS (11)
  - ACUTE MYOCARDIAL INFARCTION [None]
  - ADVERSE EVENT [None]
  - CEREBROVASCULAR ACCIDENT [None]
  - CHEST PAIN [None]
  - CORONARY ARTERY DISEASE [None]
  - DIABETES MELLITUS NON-INSULIN-DEPENDENT [None]
  - DIARRHOEA [None]
  - FLATULENCE [None]
  - OEDEMA PERIPHERAL [None]
  - PRESCRIBED OVERDOSE [None]
  - RENAL FAILURE CHRONIC [None]
